FAERS Safety Report 7516134-9 (Version None)
Quarter: 2011Q2

REPORT INFORMATION
  Report Type: 
  Country: None (occurrence: None)
  Receive Date: 20110601
  Receipt Date: 20110526
  Transmission Date: 20111010
  Serious: Yes (Hospitalization)
  Sender: FDA-Public Use
  Company Number: CR-ROCHE-779591

PATIENT
  Sex: Female

DRUGS (3)
  1. MONTELUKAST SODIUM [Concomitant]
     Dosage: REPORTED INDICATION: SLEEP APNEA EPISODE 2 YEARS AGO
     Route: 048
  2. IBANDRONATE SODIUM [Suspect]
     Indication: OSTEOPOROSIS
     Route: 048
     Dates: start: 20100927
  3. IRBESARTAN [Concomitant]
     Indication: HYPERTENSION
     Route: 048

REACTIONS (1)
  - HIP FRACTURE [None]
